FAERS Safety Report 4596016-5 (Version None)
Quarter: 2005Q1

REPORT INFORMATION
  Report Type: 
  Country: None (occurrence: None)
  Receive Date: 20050225
  Receipt Date: 20050215
  Transmission Date: 20050727
  Serious: Yes (Hospitalization, Other)
  Sender: FDA-Public Use
  Company Number: FRWYE424915FEB05

PATIENT
  Age: 59 Year
  Sex: Male

DRUGS (6)
  1. TAZOCILLINE                    (PIPERACILLIN/TAZOBACTAM) [Suspect]
     Indication: FEBRILE BONE MARROW APLASIA
     Dosage: 4 G 3X PER 1 DAY INTRAVENOUS
     Route: 042
     Dates: start: 20040521, end: 20040527
  2. BACTRIM [Suspect]
     Dosage: 1 DOSE 1X PER 1 DAY ORAL
     Route: 048
     Dates: start: 20040401, end: 20040521
  3. BACTRIM [Suspect]
     Dosage: 1 DOSE 1X PER 1 DAY ORAL
     Route: 048
     Dates: start: 20040524, end: 20040530
  4. CIPROFLOXACIN HCL [Suspect]
     Dosage: 500 MG 2X PER 1 DAY ORAL
     Route: 048
     Dates: start: 20040518, end: 20040530
  5. OROKEN                                (CEFIXME) [Suspect]
     Dosage: 200 M G 2X PER 1 DAY ORAL
     Route: 048
     Dates: start: 20040527, end: 20040530
  6. FLUCONAZOLE [Suspect]
     Dosage: 200 MG 1X PER 1 DAY ORAL
     Route: 048
     Dates: start: 20040524, end: 20040530

REACTIONS (8)
  - BLOOD CREATININE INCREASED [None]
  - CHILLS [None]
  - DRUG HYPERSENSITIVITY [None]
  - HYPOTENSION [None]
  - PROTEINURIA [None]
  - PYREXIA [None]
  - RASH PAPULAR [None]
  - RASH PRURITIC [None]
